FAERS Safety Report 15549694 (Version 1)
Quarter: 2018Q4

REPORT INFORMATION
  Report Type: Report from Study
  Country: BR (occurrence: BR)
  Receive Date: 20181025
  Receipt Date: 20181025
  Transmission Date: 20190205
  Serious: Yes (Other)
  Sender: FDA-Public Use
  Company Number: BR-ROCHE-2202520

PATIENT
  Age: 57 Year
  Sex: Female
  Weight: 58 kg

DRUGS (10)
  1. XOLAIR [Suspect]
     Active Substance: OMALIZUMAB
     Route: 058
     Dates: start: 201806
  2. PREDSIM [Suspect]
     Active Substance: PREDNISOLONE
     Indication: URTICARIA
     Route: 065
  3. ALEKTOS [Concomitant]
     Active Substance: BILASTINE
     Indication: URTICARIA
     Dosage: 20 MG, 15 DAYS AGO
     Route: 065
  4. XOLAIR [Suspect]
     Active Substance: OMALIZUMAB
     Indication: URTICARIA
     Dosage: 300 MG (2 AMPOULES), QMO
     Route: 058
     Dates: start: 20180409
  5. DESLORATADINE. [Concomitant]
     Active Substance: DESLORATADINE
     Indication: URTICARIA
     Dosage: 5 MG, 15 DAYS
     Route: 065
  6. XOLAIR [Suspect]
     Active Substance: OMALIZUMAB
     Route: 058
     Dates: start: 20180524
  7. PHENERGAN [Suspect]
     Active Substance: PROMETHAZINE HYDROCHLORIDE
     Indication: PRODUCT USED FOR UNKNOWN INDICATION
     Route: 065
  8. XOLAIR [Suspect]
     Active Substance: OMALIZUMAB
     Dosage: 1 DF (150 MG), QMO
     Route: 058
     Dates: start: 201807
  9. XOLAIR [Suspect]
     Active Substance: OMALIZUMAB
     Dosage: 300 MG (2 AMPOULES), QMO
     Route: 058
     Dates: start: 20180705
  10. HYDROXYZINE HYDROCHLORIDE. [Concomitant]
     Active Substance: HYDROXYZINE HYDROCHLORIDE
     Indication: URTICARIA
     Dosage: 3 DAYS AGO
     Route: 065

REACTIONS (28)
  - Influenza [Recovering/Resolving]
  - Headache [Not Recovered/Not Resolved]
  - Heart rate increased [Not Recovered/Not Resolved]
  - Urticaria [Not Recovered/Not Resolved]
  - Feeling hot [Recovered/Resolved with Sequelae]
  - Nasopharyngitis [Not Recovered/Not Resolved]
  - Peripheral swelling [Not Recovered/Not Resolved]
  - Oropharyngeal pain [Recovering/Resolving]
  - Pruritus [Not Recovered/Not Resolved]
  - Mouth swelling [Recovered/Resolved]
  - Spine malformation [Not Recovered/Not Resolved]
  - Cough [Not Recovered/Not Resolved]
  - Pyrexia [Not Recovered/Not Resolved]
  - Dysphonia [Recovering/Resolving]
  - Syncope [Recovered/Resolved]
  - Pain [Not Recovered/Not Resolved]
  - Nausea [Unknown]
  - Viral infection [Recovering/Resolving]
  - Feeling abnormal [Unknown]
  - Malaise [Unknown]
  - Mass [Not Recovered/Not Resolved]
  - Skin plaque [Recovered/Resolved]
  - Hypersensitivity [Unknown]
  - Erythema [Not Recovered/Not Resolved]
  - Asthenia [Not Recovered/Not Resolved]
  - Dry skin [Not Recovered/Not Resolved]
  - Secretion discharge [Recovering/Resolving]
  - Swelling [Not Recovered/Not Resolved]

NARRATIVE: CASE EVENT DATE: 20180827
